FAERS Safety Report 14903710 (Version 1)
Quarter: 2018Q2

REPORT INFORMATION
  Report Type: Spontaneous
  Country: FR (occurrence: FR)
  Receive Date: 20180516
  Receipt Date: 20180516
  Transmission Date: 20180711
  Serious: Yes (Other)
  Sender: FDA-Public Use
  Company Number: FR-MYLANLABS-2018M1031954

PATIENT
  Age: 33 Year
  Sex: Female
  Weight: 48 kg

DRUGS (6)
  1. VENLAFAXINE [Suspect]
     Active Substance: VENLAFAXINE HYDROCHLORIDE
     Indication: DEPRESSION
     Dosage: UNK
     Route: 048
  2. TRANXENE [Suspect]
     Active Substance: CLORAZEPATE DIPOTASSIUM
     Indication: ANXIETY
     Dosage: 40 MG, QD
     Route: 048
     Dates: start: 20170104, end: 20170111
  3. ESCITALOPRAM [Suspect]
     Active Substance: ESCITALOPRAM OXALATE
     Indication: DEPRESSION
     Dosage: 10 MG, QD
     Route: 048
     Dates: start: 20130101, end: 20170104
  4. LOXAPAC                            /00401801/ [Concomitant]
     Active Substance: LOXAPINE
     Indication: AGITATION
     Dosage: 20 MG, QD
     Route: 048
     Dates: start: 20170109, end: 20170109
  5. DEBRIDAT                           /00465201/ [Concomitant]
     Active Substance: TRIMEBUTINE MALEATE
     Indication: GASTROINTESTINAL DISORDER
     Dosage: 2 DF, QD
     Route: 048
     Dates: start: 20170104
  6. BROMAZEPAM [Concomitant]
     Active Substance: BROMAZEPAM
     Indication: ANXIETY
     Dosage: 12 MG, QD
     Route: 048
     Dates: start: 20130101, end: 20170104

REACTIONS (1)
  - Neutropenia [Not Recovered/Not Resolved]

NARRATIVE: CASE EVENT DATE: 201701
